FAERS Safety Report 13896709 (Version 1)
Quarter: 2017Q3

REPORT INFORMATION
  Report Type: Spontaneous
  Country: ES (occurrence: ES)
  Receive Date: 20170823
  Receipt Date: 20170823
  Transmission Date: 20171127
  Serious: Yes (Other)
  Sender: FDA-Public Use
  Company Number: ES-JNJFOC-20170815386

PATIENT
  Age: 80 Year
  Sex: Male

DRUGS (10)
  1. SEEBRI [Concomitant]
     Active Substance: GLYCOPYRRONIUM
     Dosage: END OF TREATMENT DATE: 02-APR-2018
     Dates: start: 20150515
  2. ONBREZ [Concomitant]
     Active Substance: INDACATEROL
     Dosage: END OF TREATMENT DATE: 02-APR-2018
     Dates: start: 20150515
  3. PREDNISONE. [Concomitant]
     Active Substance: PREDNISONE
     Dosage: END OF TREATMENT DATE  PROVIDED: 25-AUG-2017
     Dates: start: 20170627
  4. MONTELUKAST [Concomitant]
     Active Substance: MONTELUKAST SODIUM
     Indication: PREMEDICATION
  5. DARZALEX [Suspect]
     Active Substance: DARATUMUMAB
     Indication: PLASMA CELL MYELOMA
     Route: 042
     Dates: start: 20170626
  6. ACICLOVIR [Concomitant]
     Active Substance: ACYCLOVIR
     Dosage: END OF TREATMENT DATE PROVIDED: 24-SEP-2017
     Dates: start: 20170627
  7. ADIRO [Concomitant]
     Active Substance: ASPIRIN
     Dosage: END OF TREATMENT DATE PROCIDED: 23-JUN-2018
     Dates: start: 20161220
  8. OMEPRAZOLE. [Concomitant]
     Active Substance: OMEPRAZOLE
     Dates: start: 20170710
  9. SILODYX [Concomitant]
     Active Substance: SILODOSIN
     Dosage: END OF TREATMENT DATE:02-APR-2018
     Dates: start: 20110428
  10. YANTIL [Concomitant]
     Active Substance: TAPENTADOL HYDROCHLORIDE
     Dosage: END OF TREATMENT DATE PROVIDED: 09-NOV-2017
     Dates: start: 20170713

REACTIONS (1)
  - Extravasation [Recovered/Resolved]

NARRATIVE: CASE EVENT DATE: 20170816
